FAERS Safety Report 25424682 (Version 1)
Quarter: 2025Q2

REPORT INFORMATION
  Report Type: Spontaneous
  Country: US (occurrence: None)
  Receive Date: 20250605
  Receipt Date: 20250605
  Transmission Date: 20250717
  Serious: Yes (Other)
  Sender: FDA-CTU
  Company Number: None

PATIENT
  Age: 36 Year
  Sex: Female
  Weight: 93.89 kg

DRUGS (1)
  1. LEVOCARNITINE\SEMAGLUTIDE [Suspect]
     Active Substance: LEVOCARNITINE\SEMAGLUTIDE
     Route: 060
     Dates: start: 20250517, end: 20250517

REACTIONS (4)
  - Vomiting [None]
  - Weight decreased [None]
  - Bedridden [None]
  - Blood testosterone increased [None]

NARRATIVE: CASE EVENT DATE: 20250517
